FAERS Safety Report 25305043 (Version 3)
Quarter: 2025Q3

REPORT INFORMATION
  Report Type: Report from Study
  Country: EU (occurrence: EU)
  Receive Date: 20250513
  Receipt Date: 20250714
  Transmission Date: 20251021
  Serious: Yes (Hospitalization, Other)
  Sender: INCYTE
  Company Number: EU-002147023-NVSC2025RO073929

PATIENT
  Age: 58 Year

DRUGS (7)
  1. RUXOLITINIB [Suspect]
     Active Substance: RUXOLITINIB
     Indication: Polycythaemia vera
     Dosage: 10 MG, BID (20 MG/DAY)
  2. RUXOLITINIB [Suspect]
     Active Substance: RUXOLITINIB
     Dosage: 5 MG, BID (10 MG/DAY)
  3. CARVEDILOL [Concomitant]
     Active Substance: CARVEDILOL
     Indication: Product used for unknown indication
     Dosage: 6.25 MG, BID (1-0-1 (MORNING AND EVENING))
     Route: 065
  4. URSODIOL [Concomitant]
     Active Substance: URSODIOL
     Indication: Product used for unknown indication
     Dosage: 250 MG, QD (0-0-1 (EVENING))
     Route: 065
  5. DIUREX [PAMABROM] [Concomitant]
     Indication: Product used for unknown indication
     Route: 065
  6. OMEGA-3 FATTY ACIDS [Concomitant]
     Active Substance: OMEGA-3 FATTY ACIDS
     Indication: Product used for unknown indication
     Dosage: 600 MG, QD (1-0-0 (MORNING))
     Route: 065
  7. SINTROM [Concomitant]
     Active Substance: ACENOCOUMAROL
     Indication: Product used for unknown indication
     Route: 065

REACTIONS (4)
  - Anaemia [Recovered/Resolved]
  - Anaemia [Recovering/Resolving]
  - Hepatic failure [Recovered/Resolved]
  - Thrombocytopenia [Recovered/Resolved]
